FAERS Safety Report 18527114 (Version 1)
Quarter: 2020Q4

REPORT INFORMATION
  Report Type: Spontaneous
  Country: US (occurrence: US)
  Receive Date: 20201120
  Receipt Date: 20201120
  Transmission Date: 20210114
  Serious: No
  Sender: FDA-Public Use
  Company Number: None

PATIENT
  Age: 38 Year
  Sex: Female

DRUGS (1)
  1. HUMIRA [Suspect]
     Active Substance: ADALIMUMAB
     Indication: PSORIASIS
     Route: 058
     Dates: start: 20200828

REACTIONS (4)
  - Abortion spontaneous [None]
  - Maternal exposure during pregnancy [None]
  - Therapy interrupted [None]
  - Pregnancy [None]

NARRATIVE: CASE EVENT DATE: 20201119
